FAERS Safety Report 4990800-1 (Version None)
Quarter: 2006Q1

REPORT INFORMATION
  Report Type: 
  Country: None (occurrence: None)
  Receive Date: 20060315
  Receipt Date: 20050804
  Transmission Date: 20060701
  Serious: Yes (Other)
  Sender: FDA-Public Use
  Company Number: USA0507104043

PATIENT
  Sex: Male

DRUGS (4)
  1. GEMZAR [Suspect]
     Indication: LYMPHOMA
     Dosage: 1000 MG/M2
     Dates: start: 20040227, end: 20040716
  2. PAMIDRONATE DISODIUM [Concomitant]
  3. PRILOSEC [Concomitant]
  4. TEMAZEPAM [Concomitant]

REACTIONS (1)
  - PNEUMONITIS [None]
